FAERS Safety Report 7939961-2 (Version None)
Quarter: 2011Q4

REPORT INFORMATION
  Report Type: 
  Country: None (occurrence: None)
  Receive Date: 20111125
  Receipt Date: 20111121
  Transmission Date: 20120403
  Serious: Yes (Other)
  Sender: FDA-Public Use
  Company Number: PHEH2011US009951

PATIENT
  Sex: Male
  Weight: 97.959 kg

DRUGS (1)
  1. RECLAST [Suspect]
     Indication: OSTEOPOROSIS
     Dosage: 5 MG, ONCE A YEAR
     Route: 042
     Dates: start: 20111118

REACTIONS (3)
  - CHEST PAIN [None]
  - EYE PAIN [None]
  - MONOPLEGIA [None]
